FAERS Safety Report 9092838 (Version 1)
Quarter: 2013Q1

REPORT INFORMATION
  Report Type: Report from Study
  Country: US (occurrence: US)
  Receive Date: 20130201
  Receipt Date: 20130201
  Transmission Date: 20140127
  Serious: No
  Sender: FDA-Public Use
  Company Number: US-ABBOTT-12P-163-1026557-00

PATIENT
  Age: 48 Year
  Sex: Female

DRUGS (3)
  1. HUMIRA [Suspect]
     Indication: CROHN^S DISEASE
     Route: 058
     Dates: start: 20121221
  2. ENTOCORT [Concomitant]
     Indication: CROHN^S DISEASE
     Dosage: 2 PILLS DAILY
  3. LEXAPRO [Concomitant]
     Indication: CROHN^S DISEASE
     Dosage: 1 PILL AT BEDTIME

REACTIONS (3)
  - Incorrect dose administered [Not Recovered/Not Resolved]
  - Drug dose omission [Not Recovered/Not Resolved]
  - Injection site erythema [Not Recovered/Not Resolved]
